FAERS Safety Report 8984842 (Version 1)
Quarter: 2012Q4

REPORT INFORMATION
  Report Type: Report from Study
  Country: CA (occurrence: CA)
  Receive Date: 20121225
  Receipt Date: 20121225
  Transmission Date: 20130627
  Serious: Yes (Other)
  Sender: FDA-Public Use
  Company Number: CA-JNJFOC-20121208129

PATIENT
  Age: 63 Year
  Sex: Male
  Weight: 77 kg

DRUGS (3)
  1. REMICADE [Suspect]
     Indication: CROHN^S DISEASE
     Route: 042
  2. PURINETHOL [Concomitant]
     Route: 065
     Dates: end: 2012
  3. PURINETHOL [Concomitant]
     Route: 065
     Dates: start: 2012

REACTIONS (1)
  - Knee arthroplasty [Unknown]
